FAERS Safety Report 18176483 (Version 1)
Quarter: 2020Q3

REPORT INFORMATION
  Report Type: Spontaneous
  Country: BR (occurrence: BR)
  Receive Date: 20200820
  Receipt Date: 20200820
  Transmission Date: 20201103
  Serious: Yes (Other)
  Sender: FDA-Public Use
  Company Number: BR-ELI_LILLY_AND_COMPANY-BR202008005341

PATIENT
  Age: 47 Year
  Sex: Female
  Weight: 69 kg

DRUGS (20)
  1. SIBUTRAMINE [Suspect]
     Active Substance: SIBUTRAMINE
     Indication: WEIGHT DECREASED
     Dosage: 22 MG, DAILY
     Route: 048
     Dates: start: 200512, end: 20060713
  2. BESEROL (CAFFEINE\CARISOPRODOL\PARACETAMOL\DICLOFENAC SODIUM) [Suspect]
     Active Substance: ACETAMINOPHEN\CAFFEINE\CARISOPRODOL\DICLOFENAC SODIUM
     Indication: INTERVERTEBRAL DISC PROTRUSION
     Dosage: UNK UNK, PRN
     Route: 065
     Dates: start: 2005
  3. FENOFIBRATE. [Suspect]
     Active Substance: FENOFIBRATE
     Indication: BLOOD TRIGLYCERIDES
  4. FUCUS [HOMEOPATHICS NOS] [Suspect]
     Active Substance: HOMEOPATHICS
     Indication: WEIGHT DECREASED
     Dosage: 600 MG, DAILY
     Route: 048
     Dates: start: 200512, end: 20060713
  5. TRYPTOPHAN [TRYPTOPHAN, L?] [Suspect]
     Active Substance: TRYPTOPHAN
     Indication: WEIGHT DECREASED
     Dosage: 360 MG, DAILY
     Route: 048
     Dates: start: 200512, end: 20060713
  6. CHLORDIAZEPOXIDE. [Suspect]
     Active Substance: CHLORDIAZEPOXIDE
     Indication: WEIGHT DECREASED
     Dosage: 16 MG, DAILY
     Route: 048
     Dates: start: 200512, end: 20060713
  7. GINKGO BILOBA [Suspect]
     Active Substance: GINKGO
     Indication: WEIGHT DECREASED
     Dosage: 160 MG, DAILY
     Route: 048
     Dates: start: 200512, end: 20060713
  8. BESEROL (CAFFEINE\CARISOPRODOL\PARACETAMOL\DICLOFENAC SODIUM) [Suspect]
     Active Substance: ACETAMINOPHEN\CAFFEINE\CARISOPRODOL\DICLOFENAC SODIUM
     Dosage: UNK, PRN
     Route: 065
  9. PASSIFLORA INCARNATA [Suspect]
     Active Substance: HERBALS\HOMEOPATHICS\PASSIFLORA INCARNATA FLOWERING TOP
     Indication: WEIGHT DECREASED
     Dosage: 120 MG, DAILY
     Route: 048
     Dates: start: 200512, end: 20060713
  10. PARACETAMOL [Suspect]
     Active Substance: ACETAMINOPHEN
     Indication: INTERVERTEBRAL DISC PROTRUSION
     Dosage: UNK, PRN
     Route: 065
     Dates: start: 20060715
  11. SPIRONOLACTONE. [Suspect]
     Active Substance: SPIRONOLACTONE
     Indication: WEIGHT DECREASED
     Dosage: 16 MG, DAILY
     Route: 048
     Dates: start: 200512, end: 20060713
  12. DIETHYLPROPION [AMFEPRAMONE HYDROCHLORIDE] [Suspect]
     Active Substance: DIETHYLPROPION HYDROCHLORIDE
     Indication: WEIGHT DECREASED
     Dosage: 150 MG, DAILY
     Route: 048
     Dates: start: 200512, end: 20060713
  13. FLAGYL [Suspect]
     Active Substance: METRONIDAZOLE\METRONIDAZOLE HYDROCHLORIDE
     Indication: GINGIVAL DISORDER
     Dosage: 750 MG, DAILY
     Route: 048
     Dates: start: 20060830
  14. TENOXICAM [Suspect]
     Active Substance: TENOXICAM
     Indication: FIBROMYALGIA
     Dosage: 10 MG, DAILY
     Route: 048
     Dates: start: 200604, end: 20060713
  15. FAMOTIDINE. [Suspect]
     Active Substance: FAMOTIDINE
     Indication: FIBROMYALGIA
     Dosage: 20 MG, DAILY
     Route: 048
     Dates: start: 200604, end: 20060713
  16. FENOFIBRATE. [Suspect]
     Active Substance: FENOFIBRATE
     Indication: BLOOD CHOLESTEROL ABNORMAL
     Dosage: 400 MG, DAILY
     Route: 048
     Dates: start: 200605, end: 20060713
  17. FLUOXETINE HYDROCHLORIDE. [Suspect]
     Active Substance: FLUOXETINE HYDROCHLORIDE
     Indication: WEIGHT DECREASED
     Dosage: 60 MG, DAILY
     Route: 048
     Dates: start: 200512, end: 20060713
  18. ALPRAZOLAM. [Suspect]
     Active Substance: ALPRAZOLAM
     Indication: FIBROMYALGIA
     Dosage: 0.5 MG, DAILY
     Route: 048
     Dates: start: 200604, end: 20060713
  19. ASIATICOSIDE [Suspect]
     Active Substance: ASIATICOSIDE
     Indication: WEIGHT DECREASED
     Dosage: 120 MG, DAILY
     Route: 048
     Dates: start: 200512, end: 20060713
  20. IMIPRAMINE [Suspect]
     Active Substance: IMIPRAMINE
     Indication: FIBROMYALGIA
     Dosage: 20 MG, DAILY
     Route: 048
     Dates: start: 200604, end: 20060713

REACTIONS (6)
  - Abdominal pain [Recovered/Resolved]
  - Headache [Recovered/Resolved]
  - Off label use [Unknown]
  - Abortion spontaneous [Recovered/Resolved]
  - Vaginal haemorrhage [Recovered/Resolved]
  - Exposure during pregnancy [Recovered/Resolved]

NARRATIVE: CASE EVENT DATE: 20060830
